FAERS Safety Report 25887881 (Version 2)
Quarter: 2025Q4

REPORT INFORMATION
  Report Type: Report from Study
  Country: US (occurrence: US)
  Receive Date: 20251007
  Receipt Date: 20251016
  Transmission Date: 20260117
  Serious: Yes (Other)
  Sender: RECORDATI
  Company Number: US-RECORDATI RARE DISEASE INC.-2025006973

PATIENT
  Age: 25 Year
  Sex: Male
  Weight: 71.887 kg

DRUGS (14)
  1. ISTURISA [Suspect]
     Active Substance: OSILODROSTAT PHOSPHATE
     Indication: Pituitary-dependent Cushing^s syndrome
     Dosage: 5 MILLIGRAM, BID
     Route: 048
  2. ISTURISA [Suspect]
     Active Substance: OSILODROSTAT PHOSPHATE
     Dosage: 7MG PER DAY (4 MG AM AND 3 MG PM)
     Route: 048
     Dates: start: 20250611, end: 20250921
  3. ISTURISA [Suspect]
     Active Substance: OSILODROSTAT PHOSPHATE
     Dosage: 3 MILLIGRAM, QD (PM), MISSED AM DOSE (4 MG)
     Route: 048
     Dates: start: 20250922, end: 20250922
  4. ISTURISA [Suspect]
     Active Substance: OSILODROSTAT PHOSPHATE
     Dosage: 7MG PER DAY (4 MG AM AND 3 MG PM)
     Route: 048
     Dates: start: 20250923
  5. ADDERALL [Concomitant]
     Active Substance: AMPHETAMINE ASPARTATE\AMPHETAMINE SULFATE\DEXTROAMPHETAMINE SACCHARATE\DEXTROAMPHETAMINE SULFATE
     Indication: Product used for unknown indication
     Dosage: 5 MG, QD (QAM),  (XR EXTENDED RELEASE CAPSULE)
     Route: 048
     Dates: start: 20250102
  6. ALBUTEROL SULFATE [Concomitant]
     Active Substance: ALBUTEROL SULFATE
     Indication: Product used for unknown indication
     Dosage: 108 (90 BASE), AS NEEDED
     Dates: start: 20250102
  7. DESMOPRESSIN ACETATE [Concomitant]
     Active Substance: DESMOPRESSIN ACETATE
     Indication: Product used for unknown indication
     Dosage: 0.1 MG, BID, TABLET
     Route: 048
     Dates: start: 20250102
  8. HYDROXYZINE HYDROCHLORIDE [Concomitant]
     Active Substance: HYDROXYZINE HYDROCHLORIDE
     Indication: Product used for unknown indication
     Dosage: 50 MG, QD TABLET (AT BEDTIME)
     Route: 048
     Dates: start: 20250102
  9. LABETALOL HYDROCHLORIDE [Concomitant]
     Active Substance: LABETALOL HYDROCHLORIDE
     Indication: Product used for unknown indication
     Dosage: 50 MG, BID, TABLET
     Route: 048
     Dates: start: 20250102
  10. LAMOTRIGINE [Concomitant]
     Active Substance: LAMOTRIGINE
     Indication: Product used for unknown indication
     Dosage: 25 MG, BID, TABLET
     Route: 048
     Dates: start: 20241002
  11. LORAZEPAM [Concomitant]
     Active Substance: LORAZEPAM
     Indication: Product used for unknown indication
     Dosage: 1 MG, QD, TABLET
     Route: 048
     Dates: start: 20250516
  12. METFORMIN HYDROCHLORIDE [Concomitant]
     Active Substance: METFORMIN HYDROCHLORIDE
     Indication: Product used for unknown indication
     Dosage: 1000 MG, DAILY, ER TABLET (MOD)
     Route: 048
     Dates: start: 20250102
  13. TRAZODONE HCL [Concomitant]
     Active Substance: TRAZODONE HYDROCHLORIDE
     Indication: Product used for unknown indication
     Dosage: 100 MG, QD (BEDTIME) TABLET
     Route: 048
     Dates: start: 20250102
  14. WEGOVY [Concomitant]
     Active Substance: SEMAGLUTIDE
     Indication: Product used for unknown indication
     Dosage: 0.5 MG/0.5ML, WEEKLY, SOLUTION AUTO
     Route: 058
     Dates: start: 20250317

REACTIONS (3)
  - Partial seizures with secondary generalisation [Unknown]
  - Epilepsy [Not Recovered/Not Resolved]
  - Product dose omission issue [Recovered/Resolved]

NARRATIVE: CASE EVENT DATE: 20250827
